FAERS Safety Report 7750237-9 (Version None)
Quarter: 2011Q3

REPORT INFORMATION
  Report Type: 
  Country: None (occurrence: None)
  Receive Date: 20110912
  Receipt Date: 20110902
  Transmission Date: 20111222
  Serious: Yes (Life-Threatening, Hospitalization)
  Sender: FDA-Public Use
  Company Number: AXC-2011-000418

PATIENT
  Age: 66 Year
  Sex: Male

DRUGS (5)
  1. TAKEPRON (LANSOPRAZOLE) [Concomitant]
  2. DIOVAN [Concomitant]
  3. URSODIOL [Suspect]
     Indication: HEPATIC FUNCTION ABNORMAL
     Dosage: 150 MG, QD, ORAL
     Route: 048
     Dates: start: 20110427, end: 20110628
  4. ADALAT [Concomitant]
  5. POTASSIUM GLUCONATE TAB [Concomitant]

REACTIONS (3)
  - MALAISE [None]
  - INTERSTITIAL LUNG DISEASE [None]
  - RENAL FAILURE ACUTE [None]
